FAERS Safety Report 20605779 (Version 2)
Quarter: 2022Q1

REPORT INFORMATION
  Report Type: Spontaneous
  Country: NL (occurrence: NL)
  Receive Date: 20220317
  Receipt Date: 20220318
  Transmission Date: 20220423
  Serious: Yes (Death, Other)
  Sender: FDA-Public Use
  Company Number: None

PATIENT
  Age: 47 Year
  Sex: Male

DRUGS (2)
  1. DEXAMETHASONE [Interacting]
     Active Substance: DEXAMETHASONE
     Indication: Myasthenia gravis
     Dosage: THERAPY START DATE AND END DATE : ASKU
  2. MESTINON [Suspect]
     Active Substance: PYRIDOSTIGMINE BROMIDE
     Indication: Myasthenia gravis
     Dosage: THERAPY START DATE AND END DATE : ASKU

REACTIONS (5)
  - Myocardial infarction [Fatal]
  - Myocardial infarction [Unknown]
  - Myasthenia gravis [Unknown]
  - COVID-19 [Unknown]
  - Drug interaction [Unknown]

NARRATIVE: CASE EVENT DATE: 20210801
